FAERS Safety Report 7045147-9 (Version None)
Quarter: 2010Q4

REPORT INFORMATION
  Report Type: 
  Country: None (occurrence: None)
  Receive Date: 20101013
  Receipt Date: 20101013
  Transmission Date: 20110411
  Serious: No
  Sender: FDA-Public Use
  Company Number: None

PATIENT
  Age: 50 Year
  Sex: Female
  Weight: 72.5755 kg

DRUGS (1)
  1. SMOKESTIK -JET- MED. NIC. 12 MG [Suspect]
     Indication: SMOKING CESSATION THERAPY
     Dosage: 10 PUFFS 1/2 HOUR
     Dates: start: 20101007, end: 20101007

REACTIONS (6)
  - DISSOCIATION [None]
  - DIZZINESS [None]
  - EUPHORIC MOOD [None]
  - FATIGUE [None]
  - FEELING ABNORMAL [None]
  - MIDDLE INSOMNIA [None]
